FAERS Safety Report 17058737 (Version 1)
Quarter: 2019Q4

REPORT INFORMATION
  Report Type: Spontaneous
  Country: PT (occurrence: PT)
  Receive Date: 20191121
  Receipt Date: 20191121
  Transmission Date: 20200122
  Serious: Yes (Other)
  Sender: FDA-Public Use
  Company Number: PT-HIKMA PHARMACEUTICALS USA INC.-PT-H14001-19-49832

PATIENT
  Age: 75 Year
  Sex: Female
  Weight: 65 kg

DRUGS (1)
  1. DOPAMINE [Suspect]
     Active Substance: DOPAMINE HYDROCHLORIDE
     Indication: BRADYCARDIA
     Route: 042
     Dates: start: 20191024, end: 20191024

REACTIONS (4)
  - Eyelid oedema [Recovered/Resolved]
  - Rash [Recovered/Resolved]
  - Face oedema [Recovered/Resolved]
  - Erythema [Recovered/Resolved]

NARRATIVE: CASE EVENT DATE: 20191024
